FAERS Safety Report 21051937 (Version 3)
Quarter: 2022Q3

REPORT INFORMATION
  Report Type: Report from Study
  Country: AR (occurrence: AR)
  Receive Date: 20220707
  Receipt Date: 20220725
  Transmission Date: 20221027
  Serious: Yes (Death, Hospitalization)
  Sender: FDA-Public Use
  Company Number: AR-PINT-2022-Neratinib-067

PATIENT

DRUGS (6)
  1. NERLYNX [Suspect]
     Active Substance: NERATINIB
     Indication: Breast cancer metastatic
     Dosage: 240 MG FOR 21 DAYS AND 7 DAYS OFF
     Route: 048
     Dates: start: 20211027, end: 20220509
  2. NERLYNX [Suspect]
     Active Substance: NERATINIB
     Dosage: 240 MG FOR 21 DAYS AND 7 DAYS OFF
     Route: 048
  3. METFORMIN [Concomitant]
     Active Substance: METFORMIN HYDROCHLORIDE
     Indication: Hyperglycaemia
     Dosage: METFORMINE 500 MG TWICE A DAY
  4. AMLODIPINE [Concomitant]
     Active Substance: AMLODIPINE BESYLATE
     Indication: Hypertension
     Dosage: 10 MG/DAY
  5. CAPECITABINE [Concomitant]
     Active Substance: CAPECITABINE
     Indication: Product used for unknown indication
     Dosage: 1500 MG/DAY
  6. PHENYTOIN [Concomitant]
     Active Substance: PHENYTOIN
     Indication: Hypoaesthesia
     Dosage: 20 MG

REACTIONS (6)
  - Hallucination [Unknown]
  - Delusion [Unknown]
  - General physical health deterioration [Unknown]
  - Dehydration [Unknown]
  - Off label use [Recovered/Resolved]
  - Death [Fatal]

NARRATIVE: CASE EVENT DATE: 20211027
